FAERS Safety Report 7661349-2 (Version None)
Quarter: 2011Q3

REPORT INFORMATION
  Report Type: 
  Country: None (occurrence: None)
  Receive Date: 20110805
  Receipt Date: 20100927
  Transmission Date: 20111222
  Serious: No
  Sender: FDA-Public Use
  Company Number: US-ABBOTT-10P-163-0673596-00

PATIENT
  Sex: Male
  Weight: 79.45 kg

DRUGS (5)
  1. NIASPAN [Suspect]
     Indication: BLOOD CHOLESTEROL INCREASED
     Dosage: AT BEDTIME
  2. OMEPRAZOLE [Concomitant]
     Indication: PRODUCT USED FOR UNKNOWN INDICATION
     Dosage: IN THE MORNING
  3. NIASPAN [Suspect]
     Dosage: AT BEDTIME
  4. DIOVAN HCT [Concomitant]
     Indication: PRODUCT USED FOR UNKNOWN INDICATION
     Dosage: 1/2 OF 320-25MG TABLET IN THE MORNING
  5. CRESTOR [Concomitant]
     Indication: PRODUCT USED FOR UNKNOWN INDICATION
     Dosage: IN THE EVENING

REACTIONS (8)
  - COUGH [None]
  - DIZZINESS [None]
  - CHOKING SENSATION [None]
  - SINUSITIS [None]
  - FEELING ABNORMAL [None]
  - FEELING DRUNK [None]
  - VERTIGO [None]
  - INCREASED UPPER AIRWAY SECRETION [None]
